FAERS Safety Report 10646859 (Version 1)
Quarter: 2014Q4

REPORT INFORMATION
  Report Type: Spontaneous
  Country: US (occurrence: US)
  Receive Date: 20141211
  Receipt Date: 20141211
  Transmission Date: 20150529
  Serious: Yes (Other)
  Sender: FDA-Public Use
  Company Number: US-FRI-1000072878

PATIENT
  Sex: Female

DRUGS (3)
  1. AMITIZA [Suspect]
     Active Substance: LUBIPROSTONE
  2. LINZESS [Suspect]
     Active Substance: LINACLOTIDE
  3. XARELTO [Suspect]
     Active Substance: RIVAROXABAN

REACTIONS (1)
  - Gastrointestinal haemorrhage [Recovered/Resolved]
